FAERS Safety Report 6287844-9 (Version None)
Quarter: 2009Q3

REPORT INFORMATION
  Report Type: 
  Country: None (occurrence: None)
  Receive Date: 20090720
  Receipt Date: 20090105
  Transmission Date: 20100115
  Serious: Yes (Hospitalization)
  Sender: FDA-Public Use
  Company Number: A-US2009-23266

PATIENT
  Age: 69 Year
  Sex: Female

DRUGS (2)
  1. TRACLEER [Suspect]
     Indication: DRUG USE FOR UNKNOWN INDICATION
     Dosage: 125 MG, BID, ORAL
     Route: 048
     Dates: start: 20081101, end: 20081201
  2. TRACLEER [Suspect]
     Indication: DRUG USE FOR UNKNOWN INDICATION
     Dosage: 125 MG, BID, ORAL
     Route: 048
     Dates: start: 20081201, end: 20090105

REACTIONS (8)
  - CARDIAC FAILURE [None]
  - CHILLS [None]
  - FATIGUE [None]
  - FLUID RETENTION [None]
  - MUSCLE SPASMS [None]
  - NO THERAPEUTIC RESPONSE [None]
  - PRURITUS [None]
  - SNEEZING [None]
